FAERS Safety Report 17004206 (Version 1)
Quarter: 2019Q4

REPORT INFORMATION
  Report Type: Spontaneous
  Country: JP (occurrence: JP)
  Receive Date: 20191107
  Receipt Date: 20191107
  Transmission Date: 20200122
  Serious: Yes (Other)
  Sender: FDA-Public Use
  Company Number: JP-009507513-1911JPN000274J

PATIENT
  Age: 48 Year
  Sex: Male

DRUGS (1)
  1. JANUVIA [Suspect]
     Active Substance: SITAGLIPTIN PHOSPHATE
     Indication: HYPERGLYCAEMIA
     Dosage: UNK
     Route: 048

REACTIONS (1)
  - Diabetes mellitus inadequate control [Unknown]
